FAERS Safety Report 18799391 (Version 1)
Quarter: 2021Q1

REPORT INFORMATION
  Report Type: Spontaneous
  Country: CN (occurrence: CN)
  Receive Date: 20210128
  Receipt Date: 20210128
  Transmission Date: 20210419
  Serious: Yes (Other)
  Sender: FDA-Public Use
  Company Number: CN-SLATE RUN PHARMACEUTICALS-21CN000385

PATIENT

DRUGS (7)
  1. VANCOMYCIN HYDROCHLORIDE USP [Suspect]
     Active Substance: VANCOMYCIN HYDROCHLORIDE
     Dosage: 0.5 GRAM
     Route: 061
  2. OTHER THERAPEUTIC PRODUCTS [Suspect]
     Active Substance: UNSPECIFIED INGREDIENT
     Indication: CIRCULATORY COLLAPSE
     Dosage: 500 MILLILITRE
     Route: 042
  3. ANESTHETICS [Concomitant]
     Active Substance: UNSPECIFIED INGREDIENT
     Indication: SPINAL FUSION SURGERY
  4. OTHER THERAPEUTIC PRODUCTS [Suspect]
     Active Substance: UNSPECIFIED INGREDIENT
     Indication: CIRCULATORY COLLAPSE
     Dosage: 3450 MILLILITRE
     Route: 042
  5. ANESTHETICS [Concomitant]
     Active Substance: UNSPECIFIED INGREDIENT
     Indication: SPINAL DECOMPRESSION
     Route: 065
  6. ANESTHETICS [Concomitant]
     Active Substance: UNSPECIFIED INGREDIENT
     Indication: INTERNAL FIXATION OF SPINE
  7. VANCOMYCIN HYDROCHLORIDE USP [Suspect]
     Active Substance: VANCOMYCIN HYDROCHLORIDE
     Indication: INFECTION PROPHYLAXIS
     Dosage: 0.5 GRAM
     Route: 061

REACTIONS (9)
  - Pulmonary embolism [Recovered/Resolved]
  - Cardiac dysfunction [Recovered/Resolved]
  - Acute myocardial infarction [Recovered/Resolved]
  - Heart valve incompetence [Recovered/Resolved]
  - Haemoglobin decreased [Recovered/Resolved]
  - Circulatory collapse [Recovered/Resolved]
  - Cardiac tamponade [Recovered/Resolved]
  - Anaphylactic reaction [Recovered/Resolved]
  - Off label use [Unknown]
